FAERS Safety Report 24835338 (Version 1)
Quarter: 2025Q1

REPORT INFORMATION
  Report Type: Spontaneous
  Country: FR (occurrence: FR)
  Receive Date: 20250113
  Receipt Date: 20250113
  Transmission Date: 20250409
  Serious: Yes (Other)
  Sender: AMGEN
  Company Number: None

PATIENT
  Age: 26 Year
  Sex: Female
  Weight: 70 kg

DRUGS (2)
  1. OTEZLA [Suspect]
     Active Substance: APREMILAST
     Indication: Behcet^s syndrome
     Route: 048
     Dates: start: 20241127, end: 20241202
  2. DESOGESTREL [Concomitant]
     Active Substance: DESOGESTREL
     Route: 065

REACTIONS (3)
  - Insomnia [Recovered/Resolved]
  - Weight decreased [Recovered/Resolved]
  - Decreased appetite [Recovered/Resolved]

NARRATIVE: CASE EVENT DATE: 20241128
